FAERS Safety Report 12672977 (Version 1)
Quarter: 2016Q3

REPORT INFORMATION
  Report Type: Spontaneous
  Country: GR (occurrence: GR)
  Receive Date: 20160822
  Receipt Date: 20160822
  Transmission Date: 20161109
  Serious: Yes (Other)
  Sender: FDA-Public Use
  Company Number: GR-PFIZER INC-2016294237

PATIENT
  Age: 77 Year
  Sex: Female

DRUGS (5)
  1. METHYLPREDNISOLONE. [Suspect]
     Active Substance: METHYLPREDNISOLONE
     Dosage: 16 MG, DAILY
     Route: 048
  2. AZATHIOPRINE. [Concomitant]
     Active Substance: AZATHIOPRINE
     Indication: CROHN^S DISEASE
     Dosage: 100 MG, DAILY
     Route: 048
  3. INFLIXIMAB HOSPIRA [Suspect]
     Active Substance: INFLIXIMAB
     Indication: CROHN^S DISEASE
     Dosage: 5 MG/KG
     Route: 050
  4. GLIBENCLAMIDE [Concomitant]
     Active Substance: GLYBURIDE
     Indication: TYPE 2 DIABETES MELLITUS
     Dosage: UNK
     Route: 048
  5. METHYLPREDNISOLONE. [Suspect]
     Active Substance: METHYLPREDNISOLONE
     Indication: CROHN^S DISEASE
     Dosage: 32 MG, DAILY
     Route: 048

REACTIONS (9)
  - Nocardiosis [Recovering/Resolving]
  - Proteus infection [Unknown]
  - Immunosuppression [Unknown]
  - Pneumonia bacterial [Recovering/Resolving]
  - Urinary tract infection bacterial [Unknown]
  - Pneumocystis jirovecii pneumonia [Recovering/Resolving]
  - Oropharyngeal candidiasis [Unknown]
  - Respiratory tract infection bacterial [Unknown]
  - Acinetobacter infection [Unknown]
